FAERS Safety Report 7212939-2 (Version None)
Quarter: 2010Q4

REPORT INFORMATION
  Report Type: 
  Country: None (occurrence: None)
  Receive Date: 20101229
  Receipt Date: 20101214
  Transmission Date: 20110411
  Serious: Yes (Hospitalization)
  Sender: FDA-Public Use
  Company Number: 023862

PATIENT
  Age: 70 Year
  Sex: Female

DRUGS (1)
  1. KEPPRA [Suspect]
     Dosage: (500 MG BID ORAL  )
     Route: 048

REACTIONS (1)
  - DRUG ERUPTION [None]
